APPROVED DRUG PRODUCT: SODIUM NITROPRUSSIDE
Active Ingredient: SODIUM NITROPRUSSIDE
Strength: 25MG/ML
Dosage Form/Route: INJECTABLE;INJECTION
Application: A209493 | Product #001 | TE Code: AP
Applicant: AMNEAL EU LTD
Approved: Nov 7, 2017 | RLD: No | RS: No | Type: RX